FAERS Safety Report 6872749-2 (Version None)
Quarter: 2010Q3

REPORT INFORMATION
  Report Type: 
  Country: None (occurrence: None)
  Receive Date: 20100723
  Receipt Date: 20081024
  Transmission Date: 20110219
  Serious: No
  Sender: FDA-Public Use
  Company Number: US-PFIZER INC-2008092148

PATIENT
  Sex: Female
  Weight: 63.636 kg

DRUGS (1)
  1. CHANTIX [Suspect]
     Indication: SMOKING CESSATION THERAPY
     Route: 048
     Dates: start: 20081023, end: 20081023

REACTIONS (5)
  - DIARRHOEA [None]
  - HYPERSENSITIVITY [None]
  - MALAISE [None]
  - URTICARIA [None]
  - VOMITING [None]
